FAERS Safety Report 9685853 (Version 3)
Quarter: 2013Q4

REPORT INFORMATION
  Report Type: Spontaneous
  Country: JP (occurrence: JP)
  Receive Date: 20131113
  Receipt Date: 20131227
  Transmission Date: 20140711
  Serious: Yes (Death)
  Sender: FDA-Public Use
  Company Number: JP-BAYER-2011-086655

PATIENT
  Age: 71 Year
  Sex: Female
  Weight: 39 kg

DRUGS (17)
  1. NEXAVAR [Suspect]
     Indication: HEPATOCELLULAR CARCINOMA
     Dosage: 400 MG, BID
     Route: 048
     Dates: start: 20110819, end: 201109
  2. NEXAVAR [Suspect]
     Indication: HEPATOCELLULAR CARCINOMA
     Dosage: 400 MG DAY
     Route: 048
     Dates: start: 20110902, end: 201112
  3. NEXAVAR [Suspect]
     Indication: HEPATOCELLULAR CARCINOMA
     Dosage: 600 MG DAILY
     Route: 048
     Dates: start: 201112, end: 20120617
  4. NEXAVAR [Suspect]
     Indication: HEPATOCELLULAR CARCINOMA
     Dosage: 800 MG DAILY
     Route: 048
     Dates: start: 20120711, end: 20120809
  5. NEXAVAR [Suspect]
     Indication: HEPATOCELLULAR CARCINOMA
     Dosage: 600 MG DAILY
     Route: 048
     Dates: start: 20120810, end: 20120822
  6. NEXAVAR [Suspect]
     Indication: HEPATOCELLULAR CARCINOMA
     Dosage: 800 MG DAILY
     Route: 048
     Dates: start: 20120901, end: 20120918
  7. NEXAVAR [Suspect]
     Indication: HEPATOCELLULAR CARCINOMA
     Dosage: 600 MG DAILY
     Route: 048
     Dates: start: 20120919, end: 20120919
  8. NEXAVAR [Suspect]
     Indication: HEPATOCELLULAR CARCINOMA
     Dosage: 400 MG DAY
     Route: 048
     Dates: start: 20120920, end: 20120922
  9. NEXAVAR [Suspect]
     Indication: HEPATOCELLULAR CARCINOMA
     Dosage: 600 MG DAILY
     Route: 048
     Dates: start: 20120923, end: 20121003
  10. NEXAVAR [Suspect]
     Indication: HEPATOCELLULAR CARCINOMA
     Dosage: UNK
     Route: 048
     Dates: start: 20121003, end: 20121023
  11. NEXAVAR [Suspect]
     Indication: HEPATOCELLULAR CARCINOMA
     Dosage: UNK
     Route: 048
     Dates: start: 20121114
  12. MAGLAX [Concomitant]
     Indication: DECREASED APPETITE
     Dosage: DAILY DOSE 990 MG
     Route: 048
     Dates: start: 20110818
  13. MAGLAX [Concomitant]
     Indication: CONSTIPATION
  14. TAKEPRON [Concomitant]
     Dosage: DAILY DOSE 15 MG
     Route: 048
     Dates: start: 20110818
  15. LASIX [Concomitant]
     Dosage: DAILY DOSE 20 MG
     Route: 048
     Dates: start: 20110818
  16. ALDACTONE A [Concomitant]
     Dosage: DAILY DOSE 50 MG
     Route: 048
     Dates: start: 20110818
  17. MEVALOTIN [Concomitant]
     Dosage: DAILY DOSE 5 MG
     Route: 048

REACTIONS (12)
  - Hepatocellular carcinoma [Fatal]
  - Palmar-plantar erythrodysaesthesia syndrome [Recovering/Resolving]
  - Hypertension [Recovered/Resolved]
  - Diarrhoea [Recovering/Resolving]
  - Alopecia [Recovering/Resolving]
  - Cough [Not Recovered/Not Resolved]
  - Pyrexia [None]
  - Nausea [None]
  - Decreased appetite [None]
  - Constipation [None]
  - Palpitations [None]
  - Mouth ulceration [None]
